FAERS Safety Report 5427061-5 (Version None)
Quarter: 2007Q3

REPORT INFORMATION
  Report Type: 
  Country: None (occurrence: None)
  Receive Date: 20070824
  Receipt Date: 20070824
  Transmission Date: 20080115
  Serious: No
  Sender: FDA-Public Use
  Company Number: None

PATIENT
  Age: 52 Year
  Sex: Female

DRUGS (8)
  1. DOCETAXEL [Suspect]
     Indication: NON-SMALL CELL LUNG CANCER
     Dosage: 114MG IV Q21DAYS
     Route: 042
     Dates: start: 20061130
  2. DOCETAXEL [Suspect]
     Indication: NON-SMALL CELL LUNG CANCER
     Dosage: 114MG IV Q21DAYS
     Route: 042
     Dates: start: 20061221
  3. MSIR [Concomitant]
  4. OXYCODONE HCL [Concomitant]
  5. COLACE [Concomitant]
  6. SENNA [Concomitant]
  7. SQH [Concomitant]
  8. ONDANSETRON [Concomitant]

REACTIONS (3)
  - CONVULSION [None]
  - INCONTINENCE [None]
  - INFUSION RELATED REACTION [None]
